FAERS Safety Report 13273180 (Version 7)
Quarter: 2018Q1

REPORT INFORMATION
  Report Type: Spontaneous
  Country: CA (occurrence: CA)
  Receive Date: 20170227
  Receipt Date: 20180315
  Transmission Date: 20180508
  Serious: Yes (Hospitalization, Other)
  Sender: FDA-Public Use
  Company Number: CA-PFIZER INC-2016021110

PATIENT
  Age: 38 Year
  Sex: Male

DRUGS (21)
  1. TYLENOL EXTRA STRENGTH [Concomitant]
     Active Substance: ACETAMINOPHEN
     Dosage: 600 MG, AS NEEDED (SEVERAL TABLETS ALMOST DAILY)
     Route: 048
  2. TYLENOL EXTRA STRENGTH [Concomitant]
     Active Substance: ACETAMINOPHEN
     Dosage: 8-10 DF, DAILY
     Route: 048
     Dates: start: 201707
  3. TYLENOL EXTRA STRENGTH [Concomitant]
     Active Substance: ACETAMINOPHEN
     Dosage: 650 MG, 2 TO 10 TIMES PER DAY AS NEEDED (PRN)
     Route: 048
  4. CORTEF [Concomitant]
     Active Substance: HYDROCORTISONE
     Dosage: 20 MG, DAILY(15 MG MORNING, 5 MG 15:00)
  5. SOMAVERT [Suspect]
     Active Substance: PEGVISOMANT
     Indication: ACROMEGALY
     Dosage: 20 MG,  (THREE TIMES PER WEEK)
     Route: 058
     Dates: start: 20150616
  6. SOMAVERT [Suspect]
     Active Substance: PEGVISOMANT
     Dosage: ALTERNATING DOSE, DAILY
     Route: 058
     Dates: end: 201711
  7. SANDOSTATIN LAR DEPOT [Concomitant]
     Active Substance: OCTREOTIDE ACETATE
     Dosage: 20 MG, MONTHLY (EVERY 30 DAYS)
     Route: 030
     Dates: start: 2000
  8. CORTEF [Concomitant]
     Active Substance: HYDROCORTISONE
     Dosage: 30 TO 35MG DAILY ON SOME DAYS
     Route: 048
     Dates: start: 201707
  9. XARELTO [Concomitant]
     Active Substance: RIVAROXABAN
     Dosage: UNK
     Dates: start: 201606
  10. SOMAVERT [Suspect]
     Active Substance: PEGVISOMANT
     Dosage: 20 MG, DAILY
     Route: 058
     Dates: start: 20170731
  11. ASA [Concomitant]
     Active Substance: ASPIRIN
     Dosage: 81 MG, DAILY
     Route: 048
     Dates: start: 2014
  12. SOMAVERT [Suspect]
     Active Substance: PEGVISOMANT
     Dosage: 20 MG,  (5X/WEEK)
     Route: 058
  13. CORTISOL [Concomitant]
     Active Substance: HYDROCORTISONE
     Dosage: UNK
  14. VOLTAREN [Concomitant]
     Active Substance: DICLOFENAC SODIUM
     Indication: BONE PAIN
  15. DELATESTRYL [Concomitant]
     Active Substance: TESTOSTERONE ENANTHATE
     Dosage: 100 MG, EVERY FRIDAY
     Route: 030
     Dates: start: 20170804
  16. SANDOSTATIN [Concomitant]
     Active Substance: OCTREOTIDE ACETATE
     Dosage: 20MG EVERY (Q) 4WEEKS, EVERY 30 DAYS
     Route: 030
     Dates: start: 2001
  17. VOLTAREN [Concomitant]
     Active Substance: DICLOFENAC SODIUM
     Indication: ARTHRALGIA
     Dosage: UNK
  18. DELATESTRYL [Concomitant]
     Active Substance: TESTOSTERONE ENANTHATE
     Dosage: 0.5 ML, WEEKLY(100 MG EVERY WEEK ON FRIDAYS)
     Route: 030
  19. SOMAVERT [Suspect]
     Active Substance: PEGVISOMANT
     Dosage: 20 MG, DAILY 5X/WEEKL (ON WEEKDAYS)
     Route: 058
     Dates: start: 20171212
  20. CORTEF [Concomitant]
     Active Substance: HYDROCORTISONE
     Dosage: 20 MG, DAILY
     Route: 048
  21. TYLENOL EXTRA STRENGTH [Concomitant]
     Active Substance: ACETAMINOPHEN
     Dosage: 2-4 DF, DAILY
     Route: 048

REACTIONS (4)
  - Pulmonary embolism [Recovered/Resolved]
  - Injection site bruising [Unknown]
  - Drug ineffective [Not Recovered/Not Resolved]
  - Intentional product misuse [Recovered/Resolved]

NARRATIVE: CASE EVENT DATE: 2016
